FAERS Safety Report 10658127 (Version 1)
Quarter: 2014Q4

REPORT INFORMATION
  Report Type: Spontaneous
  Country: DE (occurrence: DE)
  Receive Date: 20141217
  Receipt Date: 20141217
  Transmission Date: 20150529
  Serious: Yes (Congenital Anomaly, Other)
  Sender: FDA-Public Use
  Company Number: GXKR2014DE004653

PATIENT

DRUGS (2)
  1. OXCARBAZEPINE. [Suspect]
     Active Substance: OXCARBAZEPINE
     Indication: EPILEPSY
     Dosage: UNK UKN, UNK
     Route: 064
     Dates: start: 20131123, end: 20140811
  2. FOLIO FORTE [Concomitant]
     Active Substance: FOLIC ACID\VITAMINS
     Indication: PROPHYLAXIS OF NEURAL TUBE DEFECT
     Dosage: 0.8 [MG/D ]/ DOSAGE BETWEEN 0.8 AND 0.4 MG /D
     Route: 064
     Dates: start: 20140205, end: 20140811

REACTIONS (2)
  - Microcephaly [Unknown]
  - Small for dates baby [Unknown]

NARRATIVE: CASE EVENT DATE: 20140811
